APPROVED DRUG PRODUCT: MYCOPHENOLATE SODIUM
Active Ingredient: MYCOPHENOLATE SODIUM
Strength: EQ 180MG BASE
Dosage Form/Route: TABLET, DELAYED RELEASE;ORAL
Application: A218603 | Product #001 | TE Code: AB
Applicant: AUROBINDO PHARMA LTD
Approved: Feb 27, 2024 | RLD: No | RS: No | Type: RX